FAERS Safety Report 14924643 (Version 1)
Quarter: 2018Q2

REPORT INFORMATION
  Report Type: Spontaneous
  Country: US (occurrence: US)
  Receive Date: 20180522
  Receipt Date: 20180522
  Transmission Date: 20180711
  Serious: Yes (Other)
  Sender: FDA-Public Use
  Company Number: US-COOPERSURGICAL, INC.-US-2018CPS031953

PATIENT

DRUGS (1)
  1. PARAGARD T 380A [Suspect]
     Active Substance: COPPER
     Indication: CONTRACEPTION
     Dosage: UNK
     Route: 015
     Dates: start: 20140106, end: 20180330

REACTIONS (4)
  - Embedded device [Recovered/Resolved]
  - Colon injury [Recovered/Resolved]
  - Bacteroides test positive [Unknown]
  - Bladder perforation [Unknown]

NARRATIVE: CASE EVENT DATE: 2018
